FAERS Safety Report 13229292 (Version 2)
Quarter: 2017Q2

REPORT INFORMATION
  Report Type: Spontaneous
  Country: US (occurrence: US)
  Receive Date: 20170214
  Receipt Date: 20170404
  Transmission Date: 20170830
  Serious: No
  Sender: FDA-Public Use
  Company Number: US-TEVA-728884ACC

PATIENT
  Age: 56 Year
  Sex: Female

DRUGS (10)
  1. VITAMIN B COMPLEX [Concomitant]
     Active Substance: CYANOCOBALAMIN\DEXPANTHENOL\NIACINAMIDE\PYRIDOXINE HYDROCHLORIDE\RIBOFLAVIN 5^-PHOSPHATE SODIUM\THIAMINE HYDROCHLORIDE\VITAMIN B COMPLEX
     Dates: start: 20161128
  2. CALCIUM [Concomitant]
     Active Substance: CALCIUM
     Dates: start: 20161128
  3. FISH OIL [Concomitant]
     Active Substance: FISH OIL
     Dates: start: 20161128
  4. GINGKO BILOB [Concomitant]
     Dates: start: 20161128
  5. COPAXONE [Suspect]
     Active Substance: GLATIRAMER ACETATE
     Indication: MULTIPLE SCLEROSIS
     Route: 058
     Dates: start: 201611
  6. LEXAPRO [Concomitant]
     Active Substance: ESCITALOPRAM OXALATE
     Dates: start: 20161128
  7. MULTIVITE [Concomitant]
     Active Substance: VITAMINS
     Dates: start: 20161128
  8. MAGNESIUM [Concomitant]
     Active Substance: MAGNESIUM
     Dates: start: 20161128
  9. PROGESTERONE. [Concomitant]
     Active Substance: PROGESTERONE
     Dates: start: 20161128
  10. VITAMIN D [Concomitant]
     Active Substance: CHOLECALCIFEROL
     Dates: start: 20161128

REACTIONS (4)
  - Urticaria [Unknown]
  - Injection site pain [Unknown]
  - Vomiting [Unknown]
  - Pruritus [Unknown]

NARRATIVE: CASE EVENT DATE: 201612
